FAERS Safety Report 16893941 (Version 2)
Quarter: 2019Q4

REPORT INFORMATION
  Report Type: Report from Study
  Country: US (occurrence: US)
  Receive Date: 20191008
  Receipt Date: 20191112
  Transmission Date: 20200122
  Serious: Yes (Hospitalization, Other)
  Sender: FDA-Public Use
  Company Number: US-R-PHARM US LLC-2019RPM00017

PATIENT
  Age: 60 Year
  Sex: Female
  Weight: 48.9 kg

DRUGS (6)
  1. ONDANSETRON HYDROCHLORIDE. [Concomitant]
     Active Substance: ONDANSETRON HYDROCHLORIDE
     Dosage: 8 MG, AS NEEDED
     Route: 048
  2. AVASTIN [Suspect]
     Active Substance: BEVACIZUMAB
     Indication: OVARIAN CANCER
     Dosage: 10 MG/KG ON DAY 1, 15
     Route: 042
     Dates: start: 20190725, end: 20190812
  3. IXABEPILONE [Suspect]
     Active Substance: IXABEPILONE
     Indication: OVARIAN CANCER
     Dosage: 20 MG/M2 ON DAY 1, 8, 15
     Route: 042
     Dates: start: 20190725, end: 20190812
  4. LORAZEPAM. [Concomitant]
     Active Substance: LORAZEPAM
     Dosage: 0.5 MG, AS NEEDED
     Route: 048
  5. OXYCODONE HYDROCHLORIDE. [Concomitant]
     Active Substance: OXYCODONE HYDROCHLORIDE
     Dosage: UNK UNK, AS NEEDED
     Route: 048
  6. ESCITALOPRAM OXALATE. [Concomitant]
     Active Substance: ESCITALOPRAM OXALATE
     Dosage: 10 MG, 1X/DAY
     Route: 048

REACTIONS (17)
  - Urinary tract obstruction [Recovering/Resolving]
  - Hyponatraemia [Not Recovered/Not Resolved]
  - Urinary tract infection [Recovered/Resolved]
  - Cystitis radiation [Recovered/Resolved]
  - Tenderness [Not Recovered/Not Resolved]
  - Thrombosis prophylaxis [Not Recovered/Not Resolved]
  - Ovarian cancer metastatic [Not Recovered/Not Resolved]
  - Acute kidney injury [Not Recovered/Not Resolved]
  - Anaemia [Recovering/Resolving]
  - Off label use [Recovered/Resolved]
  - Cystitis haemorrhagic [Recovered/Resolved]
  - Cystitis [Recovered/Resolved]
  - Performance status decreased [Unknown]
  - Metastases to bladder [Not Recovered/Not Resolved]
  - Haematuria [Recovered/Resolved]
  - Dehydration [Unknown]
  - Discomfort [Not Recovered/Not Resolved]

NARRATIVE: CASE EVENT DATE: 2019
